FAERS Safety Report 6573546-8 (Version None)
Quarter: 2010Q1

REPORT INFORMATION
  Report Type: 
  Country: None (occurrence: None)
  Receive Date: 20100208
  Receipt Date: 20100201
  Transmission Date: 20100710
  Serious: Yes (Life-Threatening)
  Sender: FDA-Public Use
  Company Number: JP-ROCHE-673650

PATIENT
  Sex: Male
  Weight: 59 kg

DRUGS (8)
  1. AVASTIN [Suspect]
     Indication: LARGE INTESTINE CARCINOMA
     Route: 041
     Dates: start: 20090122, end: 20091105
  2. ELPLAT [Concomitant]
     Dosage: NOTE: UNCERTAINITY
     Route: 041
  3. 5-FU [Concomitant]
     Dosage: FORM: INTRAVENOUS BOLUS, NOTE: UNCERTAINITY
     Route: 040
  4. 5-FU [Concomitant]
     Dosage: FORM: INTRAVENOUS DRIP, NOTE: UNCERTAINITY
     Route: 040
  5. LEVOFOLINATE [Concomitant]
     Dosage: NOTE: UNCERTAINITY
     Route: 041
  6. 5-FU [Concomitant]
     Route: 041
  7. LOXONIN [Concomitant]
     Dosage: NOTE: TAKEN AS NEEDED
     Route: 048
     Dates: start: 20090108, end: 20100128
  8. GASTER [Concomitant]
     Dosage: DOSE FORM: PERORAL AGENT
     Route: 048
     Dates: start: 20090511, end: 20100128

REACTIONS (3)
  - GASTROINTESTINAL PERFORATION [None]
  - PERITONITIS [None]
  - SHOCK [None]
